FAERS Safety Report 5416473-1 (Version None)
Quarter: 2007Q3

REPORT INFORMATION
  Report Type: 
  Country: None (occurrence: None)
  Receive Date: 20070814
  Receipt Date: 20070803
  Transmission Date: 20080115
  Serious: Yes (Other)
  Sender: FDA-Public Use
  Company Number: 2007AL003131

PATIENT
  Age: 60 Year
  Sex: Male

DRUGS (1)
  1. GABAPENTIN [Suspect]
     Indication: NEURALGIA
     Dosage: TID

REACTIONS (2)
  - BREAKTHROUGH PAIN [None]
  - DYSARTHRIA [None]
